FAERS Safety Report 25588765 (Version 3)
Quarter: 2025Q4

REPORT INFORMATION
  Report Type: Spontaneous
  Country: US (occurrence: US)
  Receive Date: 20250722
  Receipt Date: 20251016
  Transmission Date: 20260118
  Serious: Yes (Death, Hospitalization, Other)
  Sender: BRISTOL-MYERS SQUIBB COMPANY
  Company Number: US-BRISTOL-MYERS SQUIBB COMPANY-2025-101305

PATIENT
  Age: 84 Year
  Sex: Female

DRUGS (1)
  1. BREYANZI [Suspect]
     Active Substance: LISOCABTAGENE MARALEUCEL
     Indication: Diffuse large B-cell lymphoma
     Dosage: FREQUENCY: ONCE
     Dates: start: 2025, end: 2025

REACTIONS (2)
  - Haemophagocytic lymphohistiocytosis [Fatal]
  - Pneumonia [Unknown]

NARRATIVE: CASE EVENT DATE: 20250101
